FAERS Safety Report 5982696-6 (Version None)
Quarter: 2008Q4

REPORT INFORMATION
  Report Type: 
  Country: None (occurrence: None)
  Receive Date: 20081208
  Receipt Date: 20080221
  Transmission Date: 20090506
  Serious: Yes (Hospitalization)
  Sender: FDA-Public Use
  Company Number: US-AMGEN-STX260471

PATIENT
  Sex: Female

DRUGS (11)
  1. ENBREL [Suspect]
     Indication: RHEUMATOID ARTHRITIS
     Route: 058
     Dates: start: 20040729, end: 20080114
  2. MELOXICAM [Concomitant]
     Route: 065
     Dates: start: 20070601
  3. METHOTREXATE [Concomitant]
     Route: 065
     Dates: start: 20040505
  4. FOLIC ACID [Concomitant]
     Route: 065
     Dates: start: 20040505
  5. CALCIUM WITH VITAMIN D [Concomitant]
     Route: 065
     Dates: start: 20030401
  6. AMBIEN [Concomitant]
     Route: 065
     Dates: start: 20031001
  7. LISINOPRIL [Concomitant]
     Route: 065
  8. SIMVASTATIN [Concomitant]
     Route: 065
  9. EFFEXOR [Concomitant]
     Route: 065
  10. EFFEXOR [Concomitant]
  11. CARVEDILOL [Concomitant]
     Route: 065

REACTIONS (2)
  - MACROCYTOSIS [None]
  - TRANSIENT ISCHAEMIC ATTACK [None]
